FAERS Safety Report 21597097 (Version 2)
Quarter: 2022Q4

REPORT INFORMATION
  Report Type: Spontaneous
  Country: FR (occurrence: FR)
  Receive Date: 20221115
  Receipt Date: 20221221
  Transmission Date: 20230113
  Serious: Yes (Disabling)
  Sender: FDA-Public Use
  Company Number: FR-Zentiva-2022-ZT-007816

PATIENT
  Sex: Female

DRUGS (1)
  1. IMATINIB [Suspect]
     Active Substance: IMATINIB
     Indication: Chronic myeloid leukaemia
     Dosage: 400 MILLIGRAM
     Route: 065
     Dates: start: 20200212, end: 202005

REACTIONS (4)
  - Muscle spasms [Recovered/Resolved]
  - Fluid retention [Recovered/Resolved]
  - Intentional product use issue [Recovered/Resolved]
  - Exposure during pregnancy [Recovered/Resolved]

NARRATIVE: CASE EVENT DATE: 20200212
